FAERS Safety Report 6826096-5 (Version None)
Quarter: 2010Q2

REPORT INFORMATION
  Report Type: 
  Country: None (occurrence: None)
  Receive Date: 20100520
  Receipt Date: 20090408
  Transmission Date: 20101027
  Serious: Yes (Other)
  Sender: FDA-Public Use
  Company Number: 2006102240

PATIENT
  Age: 53 Year
  Sex: Female

DRUGS (7)
  1. PROVERA [Suspect]
     Indication: HORMONE REPLACEMENT THERAPY
     Dosage: 2.5 MG, ORAL
     Route: 048
     Dates: start: 19950701, end: 19950901
  2. OGEN [Suspect]
     Indication: HORMONE REPLACEMENT THERAPY
     Dosage: 1.25 MG, ORAL
     Route: 048
     Dates: start: 19950101, end: 19990101
  3. AYGESTIN [Suspect]
     Indication: HORMONE REPLACEMENT THERAPY
     Dosage: HALF OF 5MG TABLET, ORAL
     Route: 048
     Dates: start: 19960401, end: 20000801
  4. FEMHRT [Suspect]
     Indication: HORMONE REPLACEMENT THERAPY
     Dosage: 1MG AND 5MCG
     Dates: start: 20000801, end: 20020801
  5. ESTROPIPATE [Suspect]
     Indication: HORMONE REPLACEMENT THERAPY
     Dosage: 1.25MG AND 5MG
     Dates: start: 19970701, end: 20000801
  6. ZOLOFT [Concomitant]
  7. PROPRANOLOL [Concomitant]

REACTIONS (1)
  - BREAST CANCER [None]
